FAERS Safety Report 12626255 (Version 1)
Quarter: 2016Q3

REPORT INFORMATION
  Report Type: Report from Study
  Country: US (occurrence: US)
  Receive Date: 20160805
  Receipt Date: 20160805
  Transmission Date: 20161109
  Serious: Yes (Hospitalization)
  Sender: FDA-Public Use
  Company Number: US-ROCHE-1801084

PATIENT
  Age: 68 Year
  Sex: Male
  Weight: 81.6 kg

DRUGS (4)
  1. RASBURICASE [Concomitant]
     Active Substance: RASBURICASE
     Indication: BLOOD URIC ACID INCREASED
  2. ALLOPURINOL. [Concomitant]
     Active Substance: ALLOPURINOL
     Route: 065
     Dates: start: 20160607
  3. IBRUTINIB [Suspect]
     Active Substance: IBRUTINIB
     Indication: CHRONIC LYMPHOCYTIC LEUKAEMIA
     Dosage: LAST DOSE PRIOR TO SAE: 20/JUL/2016 (C2D10)
     Route: 048
     Dates: start: 20160711, end: 20160721
  4. OBINUTUZUMAB [Suspect]
     Active Substance: OBINUTUZUMAB
     Indication: CHRONIC LYMPHOCYTIC LEUKAEMIA
     Dosage: LAST DOSE PRIOR TO SAE: 20/JUL/2016  (C2D10)
     Route: 042
     Dates: start: 20160607, end: 20160711

REACTIONS (1)
  - Gout [Unknown]

NARRATIVE: CASE EVENT DATE: 20160721
